FAERS Safety Report 14545505 (Version 7)
Quarter: 2022Q4

REPORT INFORMATION
  Report Type: Spontaneous
  Country: US (occurrence: US)
  Receive Date: 20180219
  Receipt Date: 20221221
  Transmission Date: 20230112
  Serious: Yes (Hospitalization, Other)
  Sender: FDA-Public Use
  Company Number: US-AMGEN-USASP2018020913

PATIENT
  Age: 67 Year
  Sex: Male
  Weight: 67 kg

DRUGS (13)
  1. ENBREL [Suspect]
     Active Substance: ETANERCEPT
     Indication: Inflammation
     Dosage: 1 DF, WEEKLY
     Route: 065
  2. ENBREL [Suspect]
     Active Substance: ETANERCEPT
     Indication: Rheumatoid arthritis
     Dosage: 50 ML, WEEKLY (50ML PER WEEK)
     Route: 065
     Dates: end: 201803
  3. SULFASALAZINE [Concomitant]
     Active Substance: SULFASALAZINE
     Indication: Inflammation
     Dosage: 2000 MG, 1X/DAY
  4. SULFASALAZINE [Concomitant]
     Active Substance: SULFASALAZINE
     Indication: Arthritis
     Dosage: 1000 MG, 2X/DAY (TWO 500MG TABLETS IN THE MORNING AND ANOTHER 2 ABOUT 12 HOURS LATER)
     Route: 048
  5. FOLIC ACID [Concomitant]
     Active Substance: FOLIC ACID
     Indication: Inflammation
     Dosage: 2 MG, DAILY
  6. FOLIC ACID [Concomitant]
     Active Substance: FOLIC ACID
     Indication: Arthritis
     Dosage: UNK
     Route: 065
  7. METHOTREXATE [Concomitant]
     Active Substance: METHOTREXATE
     Indication: Inflammation
     Dosage: 20 MG, WEEKLY
  8. METHOTREXATE [Concomitant]
     Active Substance: METHOTREXATE
     Indication: Arthritis
     Dosage: 20 MG, WEEKLY
     Route: 048
     Dates: end: 201802
  9. CETIRIZINE HYDROCHLORIDE [Concomitant]
     Active Substance: CETIRIZINE HYDROCHLORIDE
     Indication: Rhinorrhoea
     Dosage: UNK
  10. FERROUS SULFATE [Concomitant]
     Active Substance: FERROUS SULFATE
     Indication: Anaemia
     Dosage: UNK
  11. ASPIRIN [Concomitant]
     Active Substance: ASPIRIN
     Dosage: UNK
  12. CALCIUM CARBONATE [Concomitant]
     Active Substance: CALCIUM CARBONATE
     Dosage: UNK
  13. VITAMIN D NOS [Concomitant]
     Active Substance: VITAMIN D NOS
     Dosage: UNK

REACTIONS (6)
  - Pulmonary embolism [Unknown]
  - Eye inflammation [Recovered/Resolved]
  - Lack of injection site rotation [Unknown]
  - Eye disorder [Unknown]
  - Injection site pain [Unknown]
  - Drug ineffective [Unknown]
